FAERS Safety Report 5675017-X (Version None)
Quarter: 2008Q1

REPORT INFORMATION
  Report Type: 
  Country: None (occurrence: None)
  Receive Date: 20080320
  Receipt Date: 20080313
  Transmission Date: 20080703
  Serious: Yes (Hospitalization)
  Sender: FDA-Public Use
  Company Number: FR-AVENTIS-200811110EU

PATIENT
  Age: 44 Year
  Sex: Female

DRUGS (2)
  1. FLUDEX                             /00340101/ [Suspect]
     Dosage: DOSE: UNK
     Route: 048
  2. CALCIUM [Concomitant]

REACTIONS (1)
  - RENAL FAILURE [None]
